FAERS Safety Report 10679252 (Version 2)
Quarter: 2015Q1

REPORT INFORMATION
  Report Type: Spontaneous
  Country: AT (occurrence: AT)
  Receive Date: 20141229
  Receipt Date: 20150106
  Transmission Date: 20150720
  Serious: Yes (Other)
  Sender: FDA-Public Use
  Company Number: PHHY2014AT166190

PATIENT
  Sex: Female
  Weight: 78 kg

DRUGS (1)
  1. LETROZOLE. [Suspect]
     Active Substance: LETROZOLE
     Indication: BREAST CANCER
     Dosage: FOR 10 MONTHS
     Route: 065
     Dates: start: 20120516, end: 20130308

REACTIONS (5)
  - Breast cancer [Unknown]
  - Metastases to skin [Unknown]
  - Malignant neoplasm progression [Unknown]
  - Breast cancer recurrent [Unknown]
  - Metastases to bone [Unknown]

NARRATIVE: CASE EVENT DATE: 20141003
